FAERS Safety Report 9797778 (Version 1)
Quarter: 2014Q1

REPORT INFORMATION
  Report Type: Spontaneous
  Country: US (occurrence: US)
  Receive Date: 20140106
  Receipt Date: 20140106
  Transmission Date: 20141002
  Serious: Yes (Other)
  Sender: FDA-Public Use
  Company Number: US-JNJFOC-20131217103

PATIENT
  Age: 80 Year
  Sex: Male

DRUGS (2)
  1. CLADRIBINE [Suspect]
     Indication: HAIRY CELL LEUKAEMIA
     Route: 042
  2. RITUXIMAB [Suspect]
     Indication: HAIRY CELL LEUKAEMIA
     Dosage: DAY 1 AND 8
     Route: 065

REACTIONS (10)
  - Lymphopenia [Recovered/Resolved]
  - Haptoglobin abnormal [Unknown]
  - Blood bilirubin abnormal [Unknown]
  - Hyperuricaemia [Unknown]
  - Arthralgia [Unknown]
  - Leukopenia [Recovered/Resolved]
  - Neutropenia [Recovered/Resolved]
  - Chills [Unknown]
  - Gamma-glutamyltransferase abnormal [Unknown]
  - Incorrect dose administered [Unknown]
